FAERS Safety Report 6485417-6 (Version None)
Quarter: 2009Q4

REPORT INFORMATION
  Report Type: 
  Country: None (occurrence: None)
  Receive Date: 20091209
  Receipt Date: 20090624
  Transmission Date: 20100525
  Serious: No
  Sender: FDA-Public Use
  Company Number: US-AMGEN-KDL353210

PATIENT
  Sex: Female

DRUGS (1)
  1. ENBREL [Suspect]
     Indication: PSORIATIC ARTHROPATHY
     Route: 058
     Dates: start: 20081021

REACTIONS (7)
  - CHILLS [None]
  - FALL [None]
  - FATIGUE [None]
  - JOINT INJURY [None]
  - JOINT SWELLING [None]
  - PAIN [None]
  - PYREXIA [None]
